FAERS Safety Report 8518864-9 (Version None)
Quarter: 2012Q3

REPORT INFORMATION
  Report Type: 
  Country: None (occurrence: None)
  Receive Date: 20120709
  Receipt Date: 20120703
  Transmission Date: 20120928
  Serious: Yes (Hospitalization)
  Sender: FDA-Public Use
  Company Number: 2012032780

PATIENT
  Age: 16 Year
  Sex: Male
  Weight: 82.5547 kg

DRUGS (30)
  1. HIZENTRA [Suspect]
     Indication: HYPOGAMMAGLOBULINAEMIA
     Dosage: SEE IMAGE
     Route: 058
     Dates: start: 20120701, end: 20120701
  2. CLONIDINE [Concomitant]
  3. ZYRTEC [Concomitant]
  4. MIRALAX [Concomitant]
  5. NEXIUM [Concomitant]
  6. BACITRACIN [Concomitant]
  7. FERROUS GLUCONATE (FERROUS GLUCONATE) [Concomitant]
  8. CALCIFEROL (ERGOCALCIFEROL) [Concomitant]
  9. FLONASE [Concomitant]
  10. SPIRONOTACTONE (SPIRONOTACTONE) [Concomitant]
  11. KLONOPIN [Concomitant]
  12. BISACODYL [Concomitant]
  13. HIZENTRA [Suspect]
  14. METFFORMIN HYDROCHLORIDE [Concomitant]
  15. PREVIDENT (SODIUM FLUORIDE) [Concomitant]
  16. EPIPEN [Concomitant]
  17. PEPCID [Concomitant]
  18. XOPENEX [Concomitant]
  19. HIZENTRA [Suspect]
  20. FUROSEMIDE (FUROSEMIDE) [Concomitant]
  21. NYSTATIN [Concomitant]
  22. ERYTHROMYCIN [Concomitant]
  23. LACTOBACILLUS (LACTOBACILLUS ACIDOPHILUS) [Concomitant]
  24. CARAFATE [Concomitant]
  25. DIURIL (CHLOROTHIAZIDE) [Concomitant]
  26. ATROVENT [Concomitant]
  27. LIDOCAINE/PRILOCAINE (EMLA /00675501/) [Concomitant]
  28. AMOXICILLIN [Concomitant]
  29. OMEGA  (FISH OIL) [Concomitant]
  30. SYNTHROID [Concomitant]

REACTIONS (1)
  - CARDIAC FAILURE [None]
